FAERS Safety Report 11316595 (Version 1)
Quarter: 2015Q3

REPORT INFORMATION
  Report Type: Spontaneous
  Country: US (occurrence: None)
  Receive Date: 20150727
  Receipt Date: 20150727
  Transmission Date: 20151125
  Serious: Yes (Life-Threatening)
  Sender: FDA-Public Use
  Company Number: None

PATIENT
  Age: 51 Year
  Sex: Female
  Weight: 111.3 kg

DRUGS (2)
  1. CEFOTETAN [Suspect]
     Active Substance: CEFOTETAN DISODIUM
     Indication: GASTRECTOMY
     Dosage: 100 MLS/HR
     Route: 042
     Dates: start: 201105, end: 201305
  2. CEFOTETAN [Suspect]
     Active Substance: CEFOTETAN DISODIUM
     Indication: PREOPERATIVE CARE
     Dosage: 100 MLS/HR
     Route: 042
     Dates: start: 201105, end: 201305

REACTIONS (4)
  - Dizziness [None]
  - Chromaturia [None]
  - Fatigue [None]
  - Dyspnoea [None]
